FAERS Safety Report 7296618-1 (Version None)
Quarter: 2011Q1

REPORT INFORMATION
  Report Type: 
  Country: None (occurrence: None)
  Receive Date: 20110216
  Receipt Date: 20110208
  Transmission Date: 20110831
  Serious: Yes (Death)
  Sender: FDA-Public Use
  Company Number: PHHY2011CA03982

PATIENT
  Sex: Female

DRUGS (5)
  1. ACLASTA [Suspect]
     Dosage: UNK
     Dates: start: 20091123
  2. ACLASTA [Suspect]
     Indication: OSTEOPOROSIS
     Dosage: UNK
     Dates: start: 20081124
  3. DIOVAN [Concomitant]
  4. VERAPAMIL [Concomitant]
  5. FLEXON [Concomitant]

REACTIONS (1)
  - MYOCARDIAL INFARCTION [None]
